FAERS Safety Report 6368321-3 (Version None)
Quarter: 2009Q3

REPORT INFORMATION
  Report Type: 
  Country: None (occurrence: None)
  Receive Date: 20090922
  Receipt Date: 20090917
  Transmission Date: 20100115
  Serious: Yes (Life-Threatening, Hospitalization)
  Sender: FDA-Public Use
  Company Number: TW-ASTRAZENECA-2009SE13747

PATIENT
  Age: 71 Year
  Sex: Male
  Weight: 70.6 kg

DRUGS (13)
  1. CRESTOR [Suspect]
     Indication: HYPERLIPIDAEMIA
     Route: 048
     Dates: start: 20071114, end: 20081206
  2. CRESTOR [Suspect]
     Route: 048
     Dates: start: 20090606, end: 20090914
  3. EZETROL [Suspect]
     Indication: HYPERLIPIDAEMIA
     Dates: start: 20080201, end: 20081206
  4. EZETROL [Suspect]
     Dates: start: 20090810, end: 20090914
  5. LIPITOR [Suspect]
     Dates: start: 20081206, end: 20090606
  6. ASPIRIN [Concomitant]
     Indication: CARDIOVASCULAR EVENT PROPHYLAXIS
     Route: 048
     Dates: start: 20090606, end: 20090914
  7. DIOVAN HCT [Concomitant]
     Indication: HYPERTENSION
     Dosage: 80/12.5 TAB DAILY
     Dates: start: 20090810, end: 20090914
  8. GLUCOMET [Concomitant]
     Indication: DIABETES MELLITUS
     Dosage: GLYBURIDE 5 MG AND METFORMIN 500 MG/TAB  DAILY
     Dates: start: 20090810, end: 20090914
  9. ZOLOFT [Concomitant]
     Indication: DEPRESSION
     Route: 048
     Dates: start: 20090810, end: 20090914
  10. DEANXIT [Concomitant]
     Indication: AFFECTIVE DISORDER
     Dosage: FLUPENTHIXOL 2HCL 0.5 MG AND MELITRACEN HCL 10 MG TAB, DAILY
     Route: 048
     Dates: start: 20090820, end: 20090914
  11. NOVONORM [Concomitant]
  12. PERSANTINE [Concomitant]
  13. LESCOL XL [Concomitant]

REACTIONS (2)
  - HEPATIC FUNCTION ABNORMAL [None]
  - RENAL FAILURE CHRONIC [None]
